FAERS Safety Report 5522016-4 (Version None)
Quarter: 2007Q4

REPORT INFORMATION
  Report Type: 
  Country: None (occurrence: None)
  Receive Date: 20071115
  Receipt Date: 20071031
  Transmission Date: 20080405
  Serious: Yes (Hospitalization)
  Sender: FDA-Public Use
  Company Number: 2007PV033290

PATIENT
  Age: 54 Year
  Sex: Female
  Weight: 68.0396 kg

DRUGS (12)
  1. SYMLIN [Suspect]
     Indication: DRUG USE FOR UNKNOWN INDICATION
     Dosage: 45 MCG;TID;SC, 30 MCG;TID;SC, 15 MCG;TID;SC
     Route: 058
     Dates: start: 20070725, end: 20070727
  2. SYMLIN [Suspect]
     Indication: DRUG USE FOR UNKNOWN INDICATION
     Dosage: 45 MCG;TID;SC, 30 MCG;TID;SC, 15 MCG;TID;SC
     Route: 058
     Dates: start: 20070728, end: 20070730
  3. SYMLIN [Suspect]
     Indication: DRUG USE FOR UNKNOWN INDICATION
     Dosage: 45 MCG;TID;SC, 30 MCG;TID;SC, 15 MCG;TID;SC
     Route: 058
     Dates: start: 20070731, end: 20070801
  4. LANTUS [Concomitant]
  5. NOVOLOG [Concomitant]
  6. PRILOSEC [Concomitant]
  7. FOLIC ACID [Concomitant]
  8. METHOTREXATE [Concomitant]
  9. ZYRTEC [Concomitant]
  10. CALTRATE [Concomitant]
  11. VITAMINS [Concomitant]
  12. SINGULAIR [Concomitant]

REACTIONS (1)
  - PANCREATITIS [None]
